FAERS Safety Report 7214844-4 (Version None)
Quarter: 2011Q1

REPORT INFORMATION
  Report Type: 
  Country: None (occurrence: None)
  Receive Date: 20110107
  Receipt Date: 20100401
  Transmission Date: 20110831
  Serious: No
  Sender: FDA-Public Use
  Company Number: A0853001A

PATIENT
  Age: 51 Year
  Sex: Female

DRUGS (1)
  1. LOVAZA [Suspect]
     Dosage: 3TAB PER DAY
     Route: 048
     Dates: start: 20090301, end: 20100201

REACTIONS (1)
  - AGEUSIA [None]
